FAERS Safety Report 8590412-7 (Version None)
Quarter: 2012Q3

REPORT INFORMATION
  Report Type: 
  Country: None (occurrence: None)
  Receive Date: 20120813
  Receipt Date: 20120507
  Transmission Date: 20120928
  Serious: Yes (Other)
  Sender: FDA-Public Use
  Company Number: JP-009507513-1208JPN005059

PATIENT

DRUGS (20)
  1. PEG-INTRON [Suspect]
     Indication: HEPATITIS C
     Dosage: 1.5MCG/KG/WEEK
     Route: 058
     Dates: start: 20120117, end: 20120221
  2. PEG-INTRON [Suspect]
     Dosage: 0.45MCG/KG/WEEK
     Route: 058
     Dates: start: 20120424, end: 20120424
  3. REBETOL [Suspect]
     Route: 048
     Dates: start: 20120508, end: 20120514
  4. PEG-INTRON [Suspect]
     Dosage: 1.5MCG/KG/WEEK
     Route: 058
     Dates: start: 20120313, end: 20120410
  5. PEG-INTRON [Suspect]
     Dosage: 1.3MCG/KG/WEEK
     Route: 058
     Dates: start: 20120508, end: 20120508
  6. TELAVIC [Suspect]
     Route: 048
     Dates: start: 20120120, end: 20120120
  7. PEG-INTRON [Suspect]
     Dosage: 0.75MCG/KG/WEEK
     Route: 058
     Dates: start: 20120501, end: 20120501
  8. TELAVIC [Suspect]
     Indication: HEPATITIS C
     Route: 048
     Dates: start: 20120117, end: 20120119
  9. REBETOL [Suspect]
     Indication: HEPATITIS C
     Route: 048
     Dates: start: 20120117
  10. TELAVIC [Suspect]
     Route: 048
     Dates: start: 20120121, end: 20120410
  11. PEG-INTRON [Suspect]
     Dosage: 1.3MCG/KG/WEEK
     Route: 058
     Dates: start: 20120228, end: 20120306
  12. PEG-INTRON [Suspect]
     Dosage: 1.5MCG/KG/WEEK
     Route: 058
     Dates: start: 20120522, end: 20120626
  13. PEG-INTRON [Suspect]
     Dosage: 0.75MCG/KG/WEEK
     Route: 058
     Dates: start: 20120417, end: 20120417
  14. REBETOL [Suspect]
     Route: 048
     Dates: start: 20120522, end: 20120702
  15. FAMOTIDINE [Concomitant]
     Indication: PROPHYLAXIS
     Route: 048
     Dates: start: 20120117, end: 20120206
  16. REBETOL [Suspect]
     Route: 048
     Dates: start: 20120410, end: 20120424
  17. PEG-INTRON [Suspect]
     Dosage: 1.4MCG/KG/WEEK
     Route: 058
     Dates: start: 20120515, end: 20120515
  18. REBETOL [Suspect]
     Route: 048
     Dates: start: 20120327, end: 20120409
  19. REBETOL [Suspect]
     Dosage: 200MG/EVERY OTHER DAY
     Route: 048
     Dates: start: 20120501, end: 20120507
  20. REBETOL [Suspect]
     Route: 048
     Dates: start: 20120515, end: 20120521

REACTIONS (2)
  - HYPERURICAEMIA [None]
  - HAEMOGLOBIN DECREASED [None]
